FAERS Safety Report 24098144 (Version 1)
Quarter: 2024Q3

REPORT INFORMATION
  Report Type: Spontaneous
  Country: GB (occurrence: GB)
  Receive Date: 20240716
  Receipt Date: 20240716
  Transmission Date: 20241017
  Serious: Yes (Hospitalization, Other)
  Sender: TEVA
  Company Number: None

PATIENT
  Age: 64 Year
  Sex: Male
  Weight: 72 kg

DRUGS (3)
  1. INDAPAMIDE [Suspect]
     Active Substance: INDAPAMIDE
     Indication: Hypertension
     Dosage: DURATION: 143 DAYS
     Route: 065
     Dates: start: 20240105, end: 20240526
  2. LERCANIDIPINE [Concomitant]
     Active Substance: LERCANIDIPINE
  3. PERINDOPRIL ARGININE [Concomitant]
     Active Substance: PERINDOPRIL ARGININE
     Indication: Hypertension
     Dosage: PERINDROPIL ARGININNE
     Dates: start: 2002

REACTIONS (5)
  - Pancreatitis [Recovered/Resolved]
  - Blood glucose increased [Unknown]
  - Blood sodium decreased [Recovered/Resolved]
  - Amylase increased [Unknown]
  - Abdominal pain [Unknown]

NARRATIVE: CASE EVENT DATE: 20240422
